FAERS Safety Report 7121284-5 (Version None)
Quarter: 2010Q4

REPORT INFORMATION
  Report Type: 
  Country: None (occurrence: None)
  Receive Date: 20101122
  Receipt Date: 20101122
  Transmission Date: 20110411
  Serious: Yes (Hospitalization)
  Sender: FDA-Public Use
  Company Number: None

PATIENT
  Sex: Male
  Weight: 76.5 kg

DRUGS (6)
  1. PEG-L- ASPARAGINASE (PEGASPARGASE, ONCOSPAR) [Suspect]
     Dosage: 4825 MG
     Dates: end: 20100115
  2. PREDNISONE [Suspect]
     Dosage: 3191 MG
     Dates: end: 20100208
  3. VINCRISTINE SULFATE [Suspect]
     Dosage: 8 MG
     Dates: end: 20100202
  4. CYTARABINE [Suspect]
     Dosage: 70 MG
     Dates: end: 20100112
  5. DAUNORUBICIN HCL [Suspect]
     Dosage: 192 MG
     Dates: end: 20100202
  6. METHOTREXATE [Suspect]
     Dosage: 15 MG
     Dates: end: 20100119

REACTIONS (1)
  - BLOOD FIBRINOGEN DECREASED [None]
